FAERS Safety Report 4459756-4 (Version None)
Quarter: 2004Q3

REPORT INFORMATION
  Report Type: 
  Country: None (occurrence: None)
  Receive Date: 20040928
  Receipt Date: 20031215
  Transmission Date: 20050211
  Serious: No
  Sender: FDA-Public Use
  Company Number: US-BRISTOL-MYERS SQUIBB COMPANY-12458063

PATIENT

DRUGS (1)
  1. KENALOG-40 [Suspect]
     Route: 051

REACTIONS (3)
  - INJECTION SITE ATROPHY [None]
  - INJECTION SITE PAIN [None]
  - SKIN DISCOLOURATION [None]
